FAERS Safety Report 9258872 (Version 1)
Quarter: 2013Q2

REPORT INFORMATION
  Report Type: Spontaneous
  Country: US (occurrence: US)
  Receive Date: 20130426
  Receipt Date: 20130426
  Transmission Date: 20140414
  Serious: Yes (Other)
  Sender: FDA-Public Use
  Company Number: US-BAYER-2013-051267

PATIENT
  Age: 51 Year
  Sex: Female
  Weight: 81.63 kg

DRUGS (7)
  1. YASMIN [Suspect]
  2. OCELLA [Suspect]
  3. ACETAMINOPHEN W/CODEINE [Concomitant]
  4. IBUPROFEN [Concomitant]
  5. SIMVASTATIN [Concomitant]
  6. VALTREX [Concomitant]
  7. ASPIRIN [Concomitant]

REACTIONS (2)
  - Deep vein thrombosis [Recovered/Resolved]
  - Thrombophlebitis superficial [Recovered/Resolved]
